FAERS Safety Report 4408351-1 (Version None)
Quarter: 2004Q3

REPORT INFORMATION
  Report Type: 
  Country: None (occurrence: None)
  Receive Date: 20040722
  Receipt Date: 20040713
  Transmission Date: 20050211
  Serious: No
  Sender: FDA-Public Use
  Company Number: 2004UW14462

PATIENT
  Sex: Female

DRUGS (2)
  1. NEXIUM [Suspect]
  2. IRESSA [Suspect]
     Dosage: 250 MG

REACTIONS (2)
  - DISEASE PROGRESSION [None]
  - DRUG INTERACTION [None]
